FAERS Safety Report 17146902 (Version 1)
Quarter: 2019Q4

REPORT INFORMATION
  Report Type: Spontaneous
  Country: AZ (occurrence: AZ)
  Receive Date: 20191212
  Receipt Date: 20191212
  Transmission Date: 20200122
  Serious: Yes (Death)
  Sender: FDA-Public Use
  Company Number: NVSC2019AZ066732

PATIENT
  Sex: Female

DRUGS (1)
  1. GLIVEC [Suspect]
     Active Substance: IMATINIB MESYLATE
     Indication: ACUTE LYMPHOCYTIC LEUKAEMIA
     Dosage: 600 MG (6 X 100 MG TABLETS)
     Route: 065

REACTIONS (2)
  - Cerebral haemorrhage [Fatal]
  - Acute lymphocytic leukaemia recurrent [Fatal]
